FAERS Safety Report 9529384 (Version 4)
Quarter: 2013Q4

REPORT INFORMATION
  Report Type: Report from Study
  Country: CA (occurrence: CA)
  Receive Date: 20130917
  Receipt Date: 20131029
  Transmission Date: 20140711
  Serious: Yes (Other)
  Sender: FDA-Public Use
  Company Number: CA-ROCHE-1257211

PATIENT
  Age: 57 Year
  Sex: Female
  Weight: 87 kg

DRUGS (13)
  1. ACTEMRA [Suspect]
     Indication: RHEUMATOID ARTHRITIS
     Route: 042
     Dates: start: 20130311
  2. ACTEMRA [Suspect]
     Route: 042
     Dates: start: 20130404
  3. HYDROCHLOROTHIAZIDE [Concomitant]
  4. CYMBALTA [Concomitant]
  5. NORTRIPTYLINE [Concomitant]
  6. NASONEX [Concomitant]
  7. METHOTREXATE [Concomitant]
     Route: 048
  8. FOLIC ACID [Concomitant]
  9. ENALAPRIL [Concomitant]
  10. PLAQUENIL [Concomitant]
  11. OMEGA-3 [Concomitant]
  12. PREDNISONE [Concomitant]
  13. MORPHINE [Concomitant]

REACTIONS (9)
  - Rheumatoid arthritis [Recovered/Resolved]
  - Hepatic enzyme increased [Unknown]
  - Adiposis dolorosa [Recovering/Resolving]
  - Arthralgia [Not Recovered/Not Resolved]
  - Cyst [Not Recovered/Not Resolved]
  - Sensory disturbance [Not Recovered/Not Resolved]
  - Hypertension [Not Recovered/Not Resolved]
  - Musculoskeletal pain [Not Recovered/Not Resolved]
  - Neck pain [Not Recovered/Not Resolved]
